FAERS Safety Report 4477160-X (Version None)
Quarter: 2004Q4

REPORT INFORMATION
  Report Type: 
  Country: None (occurrence: None)
  Receive Date: 20041012
  Receipt Date: 20041001
  Transmission Date: 20050328
  Serious: Yes (Other)
  Sender: FDA-Public Use
  Company Number: 163-20785-04100133

PATIENT
  Sex: 0

DRUGS (1)
  1. THALOMID [Suspect]
     Indication: MYELOID METAPLASIA
     Dosage: 50 MG /D (CYCLE=28 DAYS), ORAL
     Route: 048

REACTIONS (7)
  - ABDOMINAL PAIN [None]
  - DEHYDRATION [None]
  - GRANULOCYTE COUNT DECREASED [None]
  - HAEMOGLOBIN DECREASED [None]
  - ILEUS [None]
  - NEUTROPHIL COUNT DECREASED [None]
  - WHITE BLOOD CELL COUNT DECREASED [None]
